FAERS Safety Report 5813340-6 (Version None)
Quarter: 2008Q3

REPORT INFORMATION
  Report Type: 
  Country: None (occurrence: None)
  Receive Date: 20080717
  Receipt Date: 20080714
  Transmission Date: 20090109
  Serious: Yes (Other)
  Sender: FDA-Public Use
  Company Number: NL-BRISTOL-MYERS SQUIBB COMPANY-14264154

PATIENT
  Age: 21 Year
  Sex: Female

DRUGS (3)
  1. CISPLATIN [Suspect]
     Indication: GERM CELL CANCER
  2. BLEOMYCIN SULFATE [Suspect]
     Indication: GERM CELL CANCER
  3. ETOPOSIDE [Suspect]
     Indication: GERM CELL CANCER

REACTIONS (2)
  - CEREBRAL INFARCTION [None]
  - DIZZINESS [None]
